FAERS Safety Report 11783824 (Version 3)
Quarter: 2016Q1

REPORT INFORMATION
  Report Type: Report from Study
  Country: FR (occurrence: FR)
  Receive Date: 20151127
  Receipt Date: 20160222
  Transmission Date: 20160525
  Serious: Yes (Hospitalization)
  Sender: FDA-Public Use
  Company Number: FR-ASTRAZENECA-2015SF13194

PATIENT
  Age: 52 Year
  Sex: Female
  Weight: 55 kg

DRUGS (10)
  1. IMODIUM [Concomitant]
     Active Substance: LOPERAMIDE HYDROCHLORIDE
     Indication: DIARRHOEA
     Dates: start: 20150616
  2. VOGALENE [Concomitant]
     Active Substance: METOPIMAZINE
     Indication: VOMITING
     Dates: start: 20150706
  3. TIORFAN [Concomitant]
     Active Substance: RACECADOTRIL
     Dates: start: 20150911
  4. FASLODEX [Suspect]
     Active Substance: FULVESTRANT
     Indication: BREAST CANCER METASTATIC
     Route: 030
     Dates: start: 20150615, end: 20150728
  5. ABEMACICLIB CODE NOT BROKEN [Suspect]
     Active Substance: ABEMACICLIB
     Indication: BREAST CANCER METASTATIC
     Route: 048
     Dates: start: 20150615, end: 20150728
  6. FASLODEX [Suspect]
     Active Substance: FULVESTRANT
     Indication: BREAST CANCER METASTATIC
     Route: 030
     Dates: start: 20150810
  7. ABEMACICLIB CODE NOT BROKEN [Suspect]
     Active Substance: ABEMACICLIB
     Indication: BREAST CANCER METASTATIC
     Route: 048
     Dates: start: 20150810
  8. NICARDIPINE HYDROCHLORIDE. [Concomitant]
     Active Substance: NICARDIPINE HYDROCHLORIDE
     Indication: HYPERTENSION
  9. SMECTA [Concomitant]
     Active Substance: MONTMORILLONITE
     Dates: start: 20150911
  10. DENOSUMAB [Concomitant]
     Active Substance: DENOSUMAB
     Indication: SUPPORTIVE CARE
     Dates: start: 201402

REACTIONS (1)
  - Hypokalaemia [Recovered/Resolved]

NARRATIVE: CASE EVENT DATE: 20151106
